FAERS Safety Report 17830623 (Version 4)
Quarter: 2024Q2

REPORT INFORMATION
  Report Type: Spontaneous
  Country: US (occurrence: US)
  Receive Date: 20200527
  Receipt Date: 20240617
  Transmission Date: 20240716
  Serious: Yes (Hospitalization, Other)
  Sender: FDA-Public Use
  Company Number: US-PFIZER INC-2020208051

PATIENT
  Age: 84 Year
  Sex: Female

DRUGS (13)
  1. IBRANCE [Suspect]
     Active Substance: PALBOCICLIB
     Indication: Breast cancer
     Dosage: ONE 100MG TABLET ORALLY DAILY, 3 WEEKS ON, ONE WEEK OFF
     Route: 048
     Dates: start: 20191219
  2. IBRANCE [Suspect]
     Active Substance: PALBOCICLIB
     Dosage: ONCE DAILY FOR 21 DAYS
     Route: 048
     Dates: start: 20200523
  3. IBRANCE [Suspect]
     Active Substance: PALBOCICLIB
     Dosage: 1 TABLET ONCE DAILY WITH FOOD FOR 21 DAYS, FOLLOWED BY 7 DAYS OFF
     Dates: start: 2020
  4. IBRANCE [Suspect]
     Active Substance: PALBOCICLIB
     Dosage: 1 TABLET (75MG) DAILY WITH FOOD FOR 21 DAYS, FOLLOWED BY 7 DAYS OFF
     Dates: start: 20191219, end: 20240517
  5. ALBUTEROL SULFATE [Concomitant]
     Active Substance: ALBUTEROL SULFATE
     Dosage: UNK (2.5)
  6. AMOXICILLIN\CLAVULANATE POTASSIUM [Concomitant]
     Active Substance: AMOXICILLIN\CLAVULANATE POTASSIUM
     Dosage: UNK (1000-62)
  7. AZITHROMYCIN [Concomitant]
     Active Substance: AZITHROMYCIN
     Dosage: 250 MG
  8. GABAPENTIN [Concomitant]
     Active Substance: GABAPENTIN
     Dosage: 300 MG
  9. LOSARTAN POTASSIUM [Concomitant]
     Active Substance: LOSARTAN POTASSIUM
     Dosage: 50 MG
  10. METOPROLOL TARTRATE [Concomitant]
     Active Substance: METOPROLOL TARTRATE
     Dosage: 50 MG
  11. MIRTAZAPINE [Concomitant]
     Active Substance: MIRTAZAPINE
     Dosage: 30 MG
  12. OLANZAPINE [Concomitant]
     Active Substance: OLANZAPINE
     Dosage: 2.5 MG
  13. PROCHLORPERAZINE MALEATE [Concomitant]
     Active Substance: PROCHLORPERAZINE MALEATE
     Dosage: 10 MG

REACTIONS (5)
  - COVID-19 [Recovering/Resolving]
  - Dependence on oxygen therapy [Unknown]
  - Laboratory test abnormal [Unknown]
  - Nausea [Recovered/Resolved]
  - Diarrhoea [Recovered/Resolved]

NARRATIVE: CASE EVENT DATE: 20200101
